FAERS Safety Report 13849210 (Version 1)
Quarter: 2017Q3

REPORT INFORMATION
  Report Type: Spontaneous
  Country: US (occurrence: US)
  Receive Date: 20170809
  Receipt Date: 20170809
  Transmission Date: 20171127
  Serious: Yes (Other)
  Sender: FDA-Public Use
  Company Number: None

PATIENT
  Age: 63 Year
  Sex: Female
  Weight: 66.6 kg

DRUGS (8)
  1. LEVOTHYROXINE. [Concomitant]
     Active Substance: LEVOTHYROXINE
  2. TRULICITY [Suspect]
     Active Substance: DULAGLUTIDE
     Indication: DIABETES MELLITUS
     Dosage: ?          QUANTITY:1 INJECTION(S);OTHER FREQUENCY:ONCE A WEEK;?
     Route: 008
     Dates: start: 20170723, end: 20170723
  3. HUMALOG [Concomitant]
     Active Substance: INSULIN LISPRO
  4. RANITIDINE. [Concomitant]
     Active Substance: RANITIDINE
  5. METFORMIN [Concomitant]
     Active Substance: METFORMIN HYDROCHLORIDE
  6. SIMVASTATIN. [Concomitant]
     Active Substance: SIMVASTATIN
  7. TRESIBA [Concomitant]
     Active Substance: INSULIN DEGLUDEC
  8. IBANDRONATE [Concomitant]
     Active Substance: IBANDRONATE SODIUM

REACTIONS (6)
  - Dehydration [None]
  - Vomiting [None]
  - Impaired work ability [None]
  - Renal disorder [None]
  - Dyspepsia [None]
  - Economic problem [None]

NARRATIVE: CASE EVENT DATE: 20170724
